FAERS Safety Report 9166189 (Version 2)
Quarter: 2013Q4

REPORT INFORMATION
  Report Type: Spontaneous
  Country: BR (occurrence: BR)
  Receive Date: 20130315
  Receipt Date: 20131010
  Transmission Date: 20140711
  Serious: Yes (Death, Hospitalization)
  Sender: FDA-Public Use
  Company Number: BR-BRISTOL-MYERS SQUIBB COMPANY-17456682

PATIENT
  Age: 45 Year
  Sex: Female

DRUGS (3)
  1. SPRYCEL (CML) TABS 50 MG [Suspect]
     Indication: MYELOID LEUKAEMIA
     Dosage: 2 TABLETS OF 50MG
  2. VANCOMYCIN [Concomitant]
  3. TAZOCIN [Concomitant]

REACTIONS (2)
  - Lung adenocarcinoma metastatic [Fatal]
  - Drug administration error [Unknown]
